FAERS Safety Report 6570399-9 (Version None)
Quarter: 2010Q1

REPORT INFORMATION
  Report Type: 
  Country: None (occurrence: None)
  Receive Date: 20100204
  Receipt Date: 20090303
  Transmission Date: 20100710
  Serious: No
  Sender: FDA-Public Use
  Company Number: A0768472A

PATIENT
  Age: 39 Year
  Sex: Female
  Weight: 150 kg

DRUGS (5)
  1. ARIXTRA [Suspect]
     Dosage: 7.5MG AT NIGHT
     Route: 058
     Dates: start: 20090102, end: 20090130
  2. COUMADIN [Concomitant]
     Route: 048
     Dates: start: 20090102
  3. TRAMADOL [Concomitant]
     Dosage: 100MG PER DAY
     Route: 048
     Dates: start: 20080630
  4. PROTONIX [Concomitant]
     Route: 048
     Dates: start: 20070630
  5. FLEXERIL [Concomitant]
     Dosage: 10MG THREE TIMES PER DAY
     Route: 048
     Dates: start: 20070120

REACTIONS (3)
  - APPLICATION SITE NODULE [None]
  - INJECTION SITE PAIN [None]
  - PAIN [None]
